FAERS Safety Report 8471417-3 (Version None)
Quarter: 2012Q2

REPORT INFORMATION
  Report Type: 
  Country: None (occurrence: None)
  Receive Date: 20120627
  Receipt Date: 20120622
  Transmission Date: 20120825
  Serious: Yes (Hospitalization)
  Sender: FDA-Public Use
  Company Number: US-ROCHE-1035910

PATIENT
  Sex: Male

DRUGS (7)
  1. REMERON [Concomitant]
  2. FERROUS SULFATE TAB [Concomitant]
  3. VEMURAFENIB [Suspect]
  4. VEMURAFENIB [Suspect]
     Indication: METASTATIC MALIGNANT MELANOMA
     Dosage: LAST DOSE PRIOR TO SAE ON 24 JAN 2012
     Route: 048
     Dates: start: 20120118
  5. OXYCONTIN [Concomitant]
     Dates: start: 20120126
  6. LASIX [Concomitant]
  7. BYSTOLIC [Concomitant]

REACTIONS (1)
  - PAIN [None]
